FAERS Safety Report 12382188 (Version 1)
Quarter: 2016Q2

REPORT INFORMATION
  Report Type: Spontaneous
  Country: US (occurrence: US)
  Receive Date: 20160518
  Receipt Date: 20160518
  Transmission Date: 20160815
  Serious: No
  Sender: FDA-Public Use
  Company Number: US-GLAXOSMITHKLINE-CHPA2016US003844

PATIENT
  Sex: Male

DRUGS (1)
  1. TRANSDERM SCOP [Suspect]
     Active Substance: SCOPOLAMINE
     Indication: DROOLING
     Dosage: UNK
     Route: 062

REACTIONS (5)
  - Application site pain [Unknown]
  - Product quality issue [Unknown]
  - Drug ineffective [Unknown]
  - Product use issue [Unknown]
  - Drug prescribing error [Unknown]
